FAERS Safety Report 24439762 (Version 2)
Quarter: 2024Q4

REPORT INFORMATION
  Report Type: Spontaneous
  Country: DE (occurrence: DE)
  Receive Date: 20241015
  Receipt Date: 20241021
  Transmission Date: 20250114
  Serious: Yes (Life-Threatening, Hospitalization, Other)
  Sender: GILEAD
  Company Number: DE-DCGMA-24204021

PATIENT
  Age: 57 Year
  Sex: Male
  Weight: 140 kg

DRUGS (3)
  1. YESCARTA [Suspect]
     Active Substance: AXICABTAGENE CILOLEUCEL
     Indication: High-grade B-cell lymphoma
     Dosage: 10^6/KG
     Route: 042
     Dates: start: 20221129, end: 20221129
  2. FLUDARABINE PHOSPHATE [Concomitant]
     Active Substance: FLUDARABINE PHOSPHATE
     Indication: High-grade B-cell lymphoma
     Dosage: 30 MG/M2
     Route: 042
     Dates: start: 20221124, end: 20221126
  3. CYCLOPHOSPHAMIDE [Concomitant]
     Active Substance: CYCLOPHOSPHAMIDE
     Indication: High-grade B-cell lymphoma
     Dosage: 500 MG/M2
     Route: 042
     Dates: start: 20221124, end: 20221126

REACTIONS (4)
  - Tumour pseudoprogression [Recovered/Resolved]
  - Condition aggravated [Recovered/Resolved]
  - Urinary tract obstruction [Recovered/Resolved]
  - Acute kidney injury [Recovered/Resolved]

NARRATIVE: CASE EVENT DATE: 20221204
